FAERS Safety Report 8814272 (Version 2)
Quarter: 2012Q4

REPORT INFORMATION
  Report Type: 
  Country: US (occurrence: US)
  Receive Date: 20120928
  Receipt Date: 20121119
  Transmission Date: 20130627
  Serious: Yes (Hospitalization)
  Sender: FDA-Public Use
  Company Number: US-BAYER-2012-100527

PATIENT
  Age: 48 Year
  Sex: Female
  Weight: 90.7 kg

DRUGS (6)
  1. YAZ [Suspect]
     Dosage: UNK
     Dates: start: 200901, end: 200903
  2. FERROUS SULFATE [Concomitant]
     Dosage: UNK
     Route: 048
  3. LEVAQUIN [Concomitant]
     Dosage: UNK
  4. PROTONIX [Concomitant]
     Dosage: UNK
  5. IRON TABLETS [Concomitant]
     Dosage: UNK
  6. BLOOD AND RELATED PRODUCTS [Concomitant]
     Dosage: UNK

REACTIONS (6)
  - Pulmonary embolism [Recovered/Resolved]
  - Abdominal pain [None]
  - Splenic infarction [None]
  - Vomiting [None]
  - Nausea [None]
  - Off label use [None]
